FAERS Safety Report 5325346-4 (Version None)
Quarter: 2007Q2

REPORT INFORMATION
  Report Type: 
  Country: None (occurrence: None)
  Receive Date: 20070515
  Receipt Date: 20070509
  Transmission Date: 20071010
  Serious: Yes (Life-Threatening, Hospitalization)
  Sender: FDA-Public Use
  Company Number: JP-ASTRAZENECA-2007AP02218

PATIENT
  Age: 19059 Day
  Sex: Female
  Weight: 58 kg

DRUGS (11)
  1. CRESTOR [Suspect]
     Indication: HYPERLIPIDAEMIA
     Route: 048
     Dates: start: 20070305, end: 20070315
  2. MEVALOTIN [Concomitant]
     Dates: end: 20070305
  3. DOGMATYL [Concomitant]
     Indication: SOMATOFORM DISORDER
     Route: 048
     Dates: start: 20051011, end: 20070319
  4. TASUOMIN [Concomitant]
     Indication: BREAST CANCER
     Route: 048
     Dates: start: 20050827, end: 20070319
  5. PL [Concomitant]
     Indication: UPPER RESPIRATORY TRACT INFLAMMATION
     Route: 048
     Dates: start: 20070305, end: 20070309
  6. TRANSAMIN [Concomitant]
     Indication: UPPER RESPIRATORY TRACT INFLAMMATION
     Route: 048
     Dates: start: 20070305, end: 20070309
  7. DASEN [Concomitant]
     Route: 048
     Dates: start: 20070305, end: 20070309
  8. AMARYL [Concomitant]
     Indication: DIABETES MELLITUS
     Route: 048
     Dates: end: 20070319
  9. NORVASC [Concomitant]
     Indication: HYPERTENSION
     Route: 048
     Dates: end: 20070319
  10. PRERAN [Concomitant]
     Indication: HYPERTENSION
     Route: 048
     Dates: end: 20070319
  11. ALOSENN [Concomitant]
     Indication: CONSTIPATION
     Route: 048
     Dates: end: 20070319

REACTIONS (7)
  - ANOREXIA [None]
  - BLOOD CREATINE PHOSPHOKINASE INCREASED [None]
  - CONVULSIONS LOCAL [None]
  - HYPONATRAEMIA [None]
  - MUSCLE SPASMS [None]
  - RENAL TUBULAR DISORDER [None]
  - VOMITING [None]
